FAERS Safety Report 8297469-1 (Version None)
Quarter: 2012Q2

REPORT INFORMATION
  Report Type: 
  Country: None (occurrence: None)
  Receive Date: 20120419
  Receipt Date: 20120409
  Transmission Date: 20120825
  Serious: Yes (Other)
  Sender: FDA-Public Use
  Company Number: PHHY2012BR030268

PATIENT
  Sex: Female

DRUGS (2)
  1. STALEVO 100 [Suspect]
     Dosage: UNK UKN, UNK
     Route: 048
  2. EXELON [Suspect]
     Dosage: UNK UKN, UNK
     Route: 062

REACTIONS (2)
  - PARKINSON'S DISEASE [None]
  - APPLICATION SITE VESICLES [None]
